FAERS Safety Report 20543613 (Version 1)
Quarter: 2022Q1

REPORT INFORMATION
  Report Type: Spontaneous
  Country: CZ (occurrence: CZ)
  Receive Date: 20220302
  Receipt Date: 20220302
  Transmission Date: 20220423
  Serious: Yes (Death, Hospitalization)
  Sender: FDA-Public Use
  Company Number: CZ-STRIDES ARCOLAB LIMITED-2022SP001994

PATIENT
  Age: 44 Year
  Sex: Female

DRUGS (8)
  1. CLARITHROMYCIN [Interacting]
     Active Substance: CLARITHROMYCIN
     Indication: Bronchitis
     Dosage: UNK
     Route: 065
     Dates: start: 2020
  2. SUNITINIB [Interacting]
     Active Substance: SUNITINIB
     Indication: Metastases to lung
     Dosage: 50 MILLIGRAM, PER DAY FOLLOWED BY 2 WEEKS OFF TREATMENT (SCHEDULE 4/2)
     Route: 065
     Dates: start: 201709
  3. AMBROXOL [Concomitant]
     Active Substance: AMBROXOL
     Indication: Bronchitis
     Dosage: UNK
     Route: 065
     Dates: start: 202002
  4. AMOXICILLIN\CLAVULANIC ACID [Concomitant]
     Active Substance: AMOXICILLIN\CLAVULANIC ACID
     Indication: Bronchitis
     Dosage: UNK
     Route: 065
     Dates: start: 202002
  5. PERINDOPRIL [Concomitant]
     Active Substance: PERINDOPRIL
     Indication: Hypertension
     Dosage: UNK
     Route: 065
  6. METOCLOPRAMIDE [Concomitant]
     Active Substance: METOCLOPRAMIDE
     Indication: Dyspepsia
     Dosage: UNK
     Route: 065
  7. AMLODIPINE [Concomitant]
     Active Substance: AMLODIPINE BESYLATE
     Indication: Hypertension
     Dosage: UNK
     Route: 065
  8. LEVOTHYROXINE SODIUM [Concomitant]
     Active Substance: LEVOTHYROXINE SODIUM
     Indication: Hypothyroidism
     Dosage: UNK
     Route: 065

REACTIONS (5)
  - Drug interaction [Fatal]
  - Coagulopathy [Fatal]
  - Thrombocytopenia [Fatal]
  - Hepatic necrosis [Fatal]
  - Acute hepatic failure [Fatal]

NARRATIVE: CASE EVENT DATE: 20200101
